FAERS Safety Report 18111868 (Version 1)
Quarter: 2020Q3

REPORT INFORMATION
  Report Type: Report from Study
  Country: JP (occurrence: JP)
  Receive Date: 20200804
  Receipt Date: 20200804
  Transmission Date: 20201103
  Serious: Yes (Other)
  Sender: FDA-Public Use
  Company Number: JP-VISTAPHARM, INC.-VER202007-001297

PATIENT
  Age: 67 Year
  Sex: Female

DRUGS (4)
  1. PREDNISOLONE. [Suspect]
     Active Substance: PREDNISOLONE
     Indication: IMMUNE THROMBOCYTOPENIA
     Dosage: 10 MG/DAY
     Route: 048
  2. PREDNISOLONE. [Suspect]
     Active Substance: PREDNISOLONE
     Dosage: 40 MG/DAY (1 MG/ KG/DAY)
     Route: 048
  3. CYCLOSPORINE A [Concomitant]
     Active Substance: CYCLOSPORINE
     Indication: THROMBOCYTOPENIA
     Dosage: 100 MG/DAY
  4. METHYLPREDNISOLONE. [Concomitant]
     Active Substance: METHYLPREDNISOLONE
     Indication: THROMBOCYTOPENIA
     Dosage: 500 MG/DAY ( PULSE THERAPY)

REACTIONS (3)
  - Drug withdrawal syndrome [Unknown]
  - Renal impairment [Recovering/Resolving]
  - Condition aggravated [Recovering/Resolving]
